FAERS Safety Report 8175408-1 (Version None)
Quarter: 2012Q1

REPORT INFORMATION
  Report Type: 
  Country: None (occurrence: None)
  Receive Date: 20120229
  Receipt Date: 20120221
  Transmission Date: 20120608
  Serious: Yes (Hospitalization)
  Sender: FDA-Public Use
  Company Number: CA-ASTRAZENECA-2011SE22549

PATIENT
  Age: 53 Year
  Sex: Male

DRUGS (7)
  1. LOMOTIL [Concomitant]
     Dosage: 2.5 PER 0.025 MG PER ORAL PRN
     Route: 048
  2. LYRICA [Concomitant]
     Route: 048
  3. ELAVIL [Concomitant]
     Route: 048
  4. NEXIUM [Concomitant]
     Route: 048
  5. EXTRA STRENGTH TYLENOL [Concomitant]
     Dosage: 2 TABLETS PRN
     Route: 048
  6. CRESTOR [Suspect]
     Route: 048
     Dates: start: 20080101
  7. LYRICA [Concomitant]
     Route: 048

REACTIONS (10)
  - DIZZINESS [None]
  - HYPERHIDROSIS [None]
  - CHEST PAIN [None]
  - NAUSEA [None]
  - TACHYCARDIA [None]
  - INSOMNIA [None]
  - IMPAIRED WORK ABILITY [None]
  - DYSPNOEA [None]
  - CONDUCTION DISORDER [None]
  - CHEST DISCOMFORT [None]
